FAERS Safety Report 25410799 (Version 1)
Quarter: 2025Q2

REPORT INFORMATION
  Report Type: Spontaneous
  Country: US (occurrence: US)
  Receive Date: 20250609
  Receipt Date: 20250609
  Transmission Date: 20250716
  Serious: Yes (Other)
  Sender: NOVO NORDISK
  Company Number: US-NOVOPROD-1448406

PATIENT
  Age: 86 Year
  Sex: Female

DRUGS (3)
  1. TRESIBA [Suspect]
     Active Substance: INSULIN DEGLUDEC
     Indication: Type 2 diabetes mellitus
     Dosage: 5 IU, QD
     Route: 058
     Dates: start: 2023
  2. FIASP [Concomitant]
     Active Substance: INSULIN ASPART
     Indication: Type 2 diabetes mellitus
  3. OZEMPIC [Suspect]
     Active Substance: SEMAGLUTIDE
     Indication: Type 2 diabetes mellitus

REACTIONS (1)
  - Glaucoma [Unknown]

NARRATIVE: CASE EVENT DATE: 20250101
